FAERS Safety Report 13164699 (Version 1)
Quarter: 2017Q1

REPORT INFORMATION
  Report Type: Spontaneous
  Country: GB (occurrence: GB)
  Receive Date: 20170130
  Receipt Date: 20170130
  Transmission Date: 20170428
  Serious: Yes (Hospitalization, Other)
  Sender: FDA-Public Use
  Company Number: GB-MYLANLABS-2017M1005155

PATIENT

DRUGS (2)
  1. WARFARIN [Suspect]
     Active Substance: WARFARIN
     Indication: DEEP VEIN THROMBOSIS
     Dosage: (HIGH DOSE) 8MG
     Route: 065
  2. WARFARIN [Suspect]
     Active Substance: WARFARIN
     Dosage: (HIGH DOSE) 9MG
     Route: 065

REACTIONS (2)
  - Compartment syndrome [Recovered/Resolved]
  - Haematoma [Recovered/Resolved]
